FAERS Safety Report 14700753 (Version 4)
Quarter: 2019Q1

REPORT INFORMATION
  Report Type: Report from Study
  Country: US (occurrence: US)
  Receive Date: 20180330
  Receipt Date: 20190322
  Transmission Date: 20190417
  Serious: Yes (Hospitalization, Other)
  Sender: FDA-Public Use
  Company Number: PHEH2018US012208

PATIENT
  Sex: Male

DRUGS (1)
  1. ENTRESTO [Suspect]
     Active Substance: SACUBITRIL\VALSARTAN
     Indication: CARDIAC FAILURE
     Dosage: UNK
     Route: 048

REACTIONS (14)
  - Dizziness [Unknown]
  - Arthritis [Unknown]
  - Cardiac failure [Unknown]
  - Dyspnoea [Unknown]
  - Anxiety [Unknown]
  - Blood glucose fluctuation [Unknown]
  - Asthenia [Unknown]
  - Hypotension [Unknown]
  - Stress [Unknown]
  - Heart rate increased [Unknown]
  - Palpitations [Unknown]
  - Myocardial infarction [Unknown]
  - Insomnia [Unknown]
  - Depression [Unknown]
